FAERS Safety Report 19765171 (Version 3)
Quarter: 2023Q4

REPORT INFORMATION
  Report Type: Spontaneous
  Country: CA (occurrence: CA)
  Receive Date: 20210831
  Receipt Date: 20231213
  Transmission Date: 20240110
  Serious: Yes (Other)
  Sender: FDA-Public Use
  Company Number: CA-TAKEDA-2021TUS051871

PATIENT
  Age: 40 Year
  Sex: Male

DRUGS (17)
  1. ALVESCO [Suspect]
     Active Substance: CICLESONIDE
     Route: 065
  2. CICLESONIDE [Suspect]
     Active Substance: CICLESONIDE
     Route: 065
  3. CORTISONE [Suspect]
     Active Substance: CORTISONE
  4. PANTOPRAZOLE SODIUM [Suspect]
     Active Substance: PANTOPRAZOLE SODIUM
  5. CALCIUM CARBONATE [Suspect]
     Active Substance: CALCIUM CARBONATE
  6. CYPROHEPTADINE HYDROCHLORIDE [Suspect]
     Active Substance: CYPROHEPTADINE HYDROCHLORIDE
  7. FLUTICASONE FUROATE\VILANTEROL TRIFENATATE [Suspect]
     Active Substance: FLUTICASONE FUROATE\VILANTEROL TRIFENATATE
  8. FORMOTEROL FUMARATE [Suspect]
     Active Substance: FORMOTEROL FUMARATE
  9. NUCALA [Suspect]
     Active Substance: MEPOLIZUMAB
     Indication: Asthma
     Route: 058
     Dates: start: 20160906
  10. NUCALA [Suspect]
     Active Substance: MEPOLIZUMAB
  11. SPIRIVA [Suspect]
     Active Substance: TIOTROPIUM BROMIDE MONOHYDRATE
  12. VENTOLIN [Suspect]
     Active Substance: ALBUTEROL SULFATE
  13. PANTOPRAZOLE [Suspect]
     Active Substance: PANTOPRAZOLE
  14. ZENHALE [Suspect]
     Active Substance: FORMOTEROL FUMARATE\MOMETASONE FUROATE
  15. NASONEX [Suspect]
     Active Substance: MOMETASONE FUROATE
  16. DESOXIMETASONE [Suspect]
     Active Substance: DESOXIMETASONE
  17. FLUTICASONE FUROATE [Suspect]
     Active Substance: FLUTICASONE FUROATE

REACTIONS (6)
  - Syncope [Not Recovered/Not Resolved]
  - Chronic sinusitis [Not Recovered/Not Resolved]
  - Nasal congestion [Not Recovered/Not Resolved]
  - Nasal polyps [Not Recovered/Not Resolved]
  - Rhinorrhoea [Not Recovered/Not Resolved]
  - Headache [Not Recovered/Not Resolved]
